FAERS Safety Report 4442864-1 (Version None)
Quarter: 2004Q3

REPORT INFORMATION
  Report Type: 
  Country: None (occurrence: None)
  Receive Date: 20040903
  Receipt Date: 20040524
  Transmission Date: 20050211
  Serious: Yes (Other)
  Sender: FDA-Public Use
  Company Number: 2004UW10852

PATIENT
  Age: 48 Year
  Sex: Female
  Weight: 70.3075 kg

DRUGS (4)
  1. CRESTOR [Suspect]
     Indication: HYPERCHOLESTEROLAEMIA
     Dosage: 10 MG QD PO
     Route: 048
  2. DEXTRA [Concomitant]
  3. FOLIC ACID [Concomitant]
  4. CENTRUM [Concomitant]

REACTIONS (3)
  - EPICONDYLITIS [None]
  - MUSCULAR WEAKNESS [None]
  - MYALGIA [None]
